FAERS Safety Report 13538004 (Version 1)
Quarter: 2017Q2

REPORT INFORMATION
  Report Type: Report from Study
  Country: None (occurrence: CO)
  Receive Date: 20170511
  Receipt Date: 20170511
  Transmission Date: 20170830
  Serious: Yes (Other)
  Sender: FDA-Public Use
  Company Number: CO-ABBVIE-17K-036-1970152-00

PATIENT
  Age: 22 Year
  Sex: Male
  Weight: 84 kg

DRUGS (1)
  1. HUMIRA [Suspect]
     Active Substance: ADALIMUMAB
     Indication: ANKYLOSING SPONDYLITIS
     Route: 058
     Dates: start: 20101118, end: 20170216

REACTIONS (2)
  - Purulent discharge [Unknown]
  - Chalazion [Recovering/Resolving]

NARRATIVE: CASE EVENT DATE: 201703
